FAERS Safety Report 5037678-8 (Version None)
Quarter: 2006Q2

REPORT INFORMATION
  Report Type: 
  Country: None (occurrence: None)
  Receive Date: 20060626
  Receipt Date: 20060626
  Transmission Date: 20061013
  Serious: Yes (Other)
  Sender: FDA-Public Use
  Company Number: None

PATIENT
  Sex: Female
  Weight: 83.0083 kg

DRUGS (1)
  1. LOPROX [Suspect]
     Indication: DERMATITIS
     Dosage: Q DAY
     Dates: start: 20051101

REACTIONS (3)
  - ERYTHEMA [None]
  - SKIN IRRITATION [None]
  - THERAPEUTIC RESPONSE UNEXPECTED WITH DRUG SUBSTITUTION [None]
